FAERS Safety Report 7883145-3 (Version None)
Quarter: 2011Q4

REPORT INFORMATION
  Report Type: 
  Country: None (occurrence: None)
  Receive Date: 20111102
  Receipt Date: 20111031
  Transmission Date: 20120403
  Serious: Yes (Hospitalization)
  Sender: FDA-Public Use
  Company Number: KR-BRISTOL-MYERS SQUIBB COMPANY-16130320

PATIENT
  Age: 34 Year
  Sex: Female

DRUGS (11)
  1. RINO EBASTEL [Concomitant]
     Dates: start: 20111004
  2. CARBOPLATIN [Suspect]
     Indication: NEOPLASM
     Route: 042
     Dates: start: 20110920
  3. MAGNESIUM OXIDE [Concomitant]
     Dates: start: 20111016, end: 20111025
  4. PACLITAXEL [Suspect]
     Indication: NEOPLASM
     Route: 042
     Dates: start: 20110920
  5. NEXIUM [Concomitant]
     Dates: start: 20111022, end: 20111031
  6. ULTRACET [Concomitant]
     Dates: start: 20111011
  7. TRANEXAMIC ACID [Concomitant]
     Dates: start: 20101018, end: 20111020
  8. BMS754807 [Suspect]
     Indication: NEOPLASM
     Route: 048
     Dates: start: 20110921
  9. METFORMIN HCL [Concomitant]
     Dates: start: 20110927, end: 20111004
  10. RESPLEN [Concomitant]
     Dosage: SYRUP
     Dates: start: 20110927
  11. FAMOTIDINE [Concomitant]
     Dates: start: 20111022, end: 20111026

REACTIONS (2)
  - MUSCULAR WEAKNESS [None]
  - LUNG CONSOLIDATION [None]
